FAERS Safety Report 24124635 (Version 2)
Quarter: 2024Q3

REPORT INFORMATION
  Report Type: Report from Study
  Country: US (occurrence: None)
  Receive Date: 20240723
  Receipt Date: 20240814
  Transmission Date: 20241016
  Serious: Yes (Other)
  Sender: ASTRAZENECA
  Company Number: 2021A211610

PATIENT
  Sex: Female

DRUGS (1)
  1. TAGRISSO [Suspect]
     Active Substance: OSIMERTINIB
     Indication: Non-small cell lung cancer
     Route: 048
     Dates: start: 20210311

REACTIONS (4)
  - Brain neoplasm malignant [Unknown]
  - Malignant neoplasm of eye [Unknown]
  - Vision blurred [Not Recovered/Not Resolved]
  - Fatigue [Unknown]
